FAERS Safety Report 4777723-8 (Version None)
Quarter: 2005Q3

REPORT INFORMATION
  Report Type: 
  Country: None (occurrence: None)
  Receive Date: 20050921
  Receipt Date: 20050810
  Transmission Date: 20060218
  Serious: Yes (Hospitalization, Disabling)
  Sender: FDA-Public Use
  Company Number: 2005RR-00652

PATIENT
  Age: 38 Year
  Sex: Male

DRUGS (1)
  1. AMOXICILLIN CLAVULANATE POTASSIUM (AMOXICILILN TRIHYDRATE) UNKNOWN [Suspect]

REACTIONS (21)
  - ABDOMINAL PAIN [None]
  - ABSCESS [None]
  - ANEURYSM [None]
  - ARTHRITIS [None]
  - BLINDNESS UNILATERAL [None]
  - DIARRHOEA HAEMORRHAGIC [None]
  - DYSPNOEA [None]
  - HEART RATE INCREASED [None]
  - HEPATIC ARTERY STENOSIS [None]
  - LEUKOCYTOCLASTIC VASCULITIS [None]
  - NEUROPATHY [None]
  - OPTIC NEUROPATHY [None]
  - PAIN IN EXTREMITY [None]
  - PALPABLE PURPURA [None]
  - RETINAL HAEMORRHAGE [None]
  - RETINAL INFARCTION [None]
  - RETINAL VASCULITIS [None]
  - TESTICULAR PAIN [None]
  - THROMBOPHLEBITIS SUPERFICIAL [None]
  - VASCULITIS NECROTISING [None]
  - VITRITIS [None]
